FAERS Safety Report 7157709-9 (Version None)
Quarter: 2010Q4

REPORT INFORMATION
  Report Type: 
  Country: None (occurrence: None)
  Receive Date: 20101214
  Receipt Date: 20100128
  Transmission Date: 20110411
  Serious: No
  Sender: FDA-Public Use
  Company Number: US-ASTRAZENECA-2010SE04010

PATIENT

DRUGS (5)
  1. CRESTOR [Suspect]
     Route: 048
  2. LOVAZA [Suspect]
     Route: 065
  3. ZETIA [Suspect]
     Route: 065
  4. TRILIPIX [Suspect]
     Route: 065
  5. NIASPAN [Suspect]
     Route: 065

REACTIONS (1)
  - LOW DENSITY LIPOPROTEIN INCREASED [None]
